FAERS Safety Report 17669855 (Version 5)
Quarter: 2021Q4

REPORT INFORMATION
  Report Type: Spontaneous
  Country: US (occurrence: US)
  Receive Date: 20200415
  Receipt Date: 20211012
  Transmission Date: 20220303
  Serious: Yes (Other)
  Sender: FDA-Public Use
  Company Number: US-PFIZER INC-2020048197

PATIENT
  Age: 74 Year
  Sex: Female

DRUGS (3)
  1. XELJANZ XR [Suspect]
     Active Substance: TOFACITINIB CITRATE
     Indication: Rheumatoid arthritis
     Dosage: 11 MG, 1X/DAY
     Route: 048
     Dates: start: 20191201
  2. PREDNISONE [Concomitant]
     Active Substance: PREDNISONE
     Indication: Respiratory tract infection
     Dosage: AS NEEDED
  3. PREDNISONE [Concomitant]
     Active Substance: PREDNISONE
     Indication: Fatigue

REACTIONS (16)
  - Large intestinal ulcer [Unknown]
  - Gastrointestinal haemorrhage [Unknown]
  - Hiatus hernia [Unknown]
  - Polyp [Unknown]
  - Respiratory tract infection [Unknown]
  - Haemoglobin decreased [Unknown]
  - Condition aggravated [Unknown]
  - Hernia [Unknown]
  - Ulcer [Unknown]
  - Dyspnoea [Unknown]
  - Fatigue [Recovered/Resolved]
  - Dizziness [Unknown]
  - Nausea [Unknown]
  - Hypotension [Unknown]
  - Gastrooesophageal reflux disease [Recovered/Resolved]
  - Circumstance or information capable of leading to medication error [Unknown]

NARRATIVE: CASE EVENT DATE: 20200301
